FAERS Safety Report 14385933 (Version 1)
Quarter: 2018Q1

REPORT INFORMATION
  Report Type: Spontaneous
  Country: US (occurrence: US)
  Receive Date: 20180115
  Receipt Date: 20180115
  Transmission Date: 20180509
  Serious: Yes (Other)
  Sender: FDA-Public Use
  Company Number: US-ASTRAZENECA-2017SE65098

PATIENT
  Age: 87 Year
  Sex: Male

DRUGS (33)
  1. LUPRON [Concomitant]
     Active Substance: LEUPROLIDE ACETATE
  2. DULCOLAX NOS [Concomitant]
     Active Substance: BISACODYL OR DOCUSATE SODIUM
  3. FISH OIL [Concomitant]
     Active Substance: FISH OIL
  4. DL-ALPHA TOCOPHERYL ACETATE [Concomitant]
  5. MANGANESE [Concomitant]
     Active Substance: MANGANESE\MANGANESE CHLORIDE
  6. POTASSIUM IODIDE. [Concomitant]
     Active Substance: POTASSIUM IODIDE
  7. DEGARELIX [Concomitant]
     Active Substance: DEGARELIX
  8. ASCORBIC ACID. [Concomitant]
     Active Substance: ASCORBIC ACID
  9. NICOTINIC ACID [Concomitant]
     Active Substance: NIACIN
  10. PANAX GINSENG [Concomitant]
     Active Substance: ASIAN GINSENG
  11. POTASSIUM SULFATE [Concomitant]
     Active Substance: POTASSIUM SULFATE
  12. CASODEX [Suspect]
     Active Substance: BICALUTAMIDE
     Indication: BLOOD TESTOSTERONE INCREASED
     Route: 048
  13. ALLOPURINOL. [Concomitant]
     Active Substance: ALLOPURINOL
  14. DEGARELIX [Concomitant]
     Active Substance: DEGARELIX
  15. PANTOTHENIC ACID [Concomitant]
     Active Substance: PANTOTHENIC ACID
  16. PYRIDOXINE [Concomitant]
     Active Substance: PYRIDOXINE
  17. ZINC. [Concomitant]
     Active Substance: ZINC
  18. FINASTERIDE. [Concomitant]
     Active Substance: FINASTERIDE
  19. BETACAROTENE [Concomitant]
     Active Substance: .BETA.-CAROTENE
  20. CYANOCOBALAMIN. [Concomitant]
     Active Substance: CYANOCOBALAMIN
  21. FOLIC ACID. [Concomitant]
     Active Substance: FOLIC ACID
  22. SELENIUM [Concomitant]
     Active Substance: SELENIUM
  23. MULTIVITAMIN [Concomitant]
     Active Substance: VITAMINS
  24. ADVIL [Concomitant]
     Active Substance: IBUPROFEN
  25. MAGNESIUM OXIDE. [Concomitant]
     Active Substance: MAGNESIUM OXIDE
  26. MEFENAMIC ACID. [Concomitant]
     Active Substance: MEFENAMIC ACID
  27. CHROMIC CHLORIDE. [Concomitant]
     Active Substance: CHROMIC CHLORIDE
  28. FERROUS FUMARATE [Concomitant]
     Active Substance: FERROUS FUMARATE
  29. SILYBUM MARIANUM FRUIT [Concomitant]
  30. XTANDI [Suspect]
     Active Substance: ENZALUTAMIDE
     Indication: PROSTATE CANCER
     Route: 048
     Dates: start: 20170208
  31. CALCIUM [Concomitant]
     Active Substance: CALCIUM
  32. RIBOFLAVIN [Concomitant]
     Active Substance: RIBOFLAVIN
  33. THIAMINE. [Concomitant]
     Active Substance: THIAMINE

REACTIONS (7)
  - Abdominal discomfort [Unknown]
  - Fatigue [Not Recovered/Not Resolved]
  - Spinal column injury [Unknown]
  - Muscle injury [Unknown]
  - Pain [Unknown]
  - Musculoskeletal discomfort [Unknown]
  - Fall [Unknown]
